FAERS Safety Report 23863255 (Version 2)
Quarter: 2024Q2

REPORT INFORMATION
  Report Type: Spontaneous
  Country: US (occurrence: US)
  Receive Date: 20240516
  Receipt Date: 20240521
  Transmission Date: 20240716
  Serious: Yes (Other)
  Sender: FDA-Public Use
  Company Number: US-KARYOPHARM-2024KPT001041

PATIENT

DRUGS (10)
  1. XPOVIO [Suspect]
     Active Substance: SELINEXOR
     Indication: Plasma cell myeloma
     Dosage: 60 MG, WEEKLY
     Route: 048
     Dates: start: 20240429, end: 20240429
  2. VELCADE [Concomitant]
     Active Substance: BORTEZOMIB
  3. ACYCLOVIR [Concomitant]
     Active Substance: ACYCLOVIR
  4. CLONIDINE [Concomitant]
     Active Substance: CLONIDINE
  5. COREG CR [Concomitant]
     Active Substance: CARVEDILOL PHOSPHATE
  6. FUROSEMIDE [Concomitant]
     Active Substance: FUROSEMIDE
  7. OLANZAPINE [Concomitant]
     Active Substance: OLANZAPINE
  8. PROCHLORPERAZINE [Concomitant]
     Active Substance: PROCHLORPERAZINE
  9. ZOFRAN [Concomitant]
     Active Substance: ONDANSETRON HYDROCHLORIDE
  10. ZUBSOLV [Concomitant]
     Active Substance: BUPRENORPHINE HYDROCHLORIDE\NALOXONE HYDROCHLORIDE

REACTIONS (4)
  - Loss of consciousness [Recovering/Resolving]
  - Confusional state [Unknown]
  - Hallucination, auditory [Recovering/Resolving]
  - Fatigue [Unknown]

NARRATIVE: CASE EVENT DATE: 20240429
